FAERS Safety Report 4287051-5 (Version None)
Quarter: 2004Q1

REPORT INFORMATION
  Report Type: 
  Country: None (occurrence: None)
  Receive Date: 20040121
  Receipt Date: 20030627
  Transmission Date: 20041129
  Serious: Yes (Hospitalization, Other)
  Sender: FDA-Public Use
  Company Number: A03200301432

PATIENT
  Age: 36 Year
  Sex: Male
  Weight: 72.5755 kg

DRUGS (2)
  1. PLAVIX [Suspect]
     Indication: CEREBROVASCULAR ACCIDENT
     Dosage: 75 MG QD - ORAL
     Route: 048
     Dates: start: 20010401, end: 20031121
  2. PLAVIX [Suspect]
     Indication: HEMIPLEGIA
     Dosage: 75 MG QD - ORAL
     Route: 048
     Dates: start: 20010401, end: 20031121

REACTIONS (2)
  - PLEURAL HAEMORRHAGE [None]
  - POST PROCEDURAL HAEMORRHAGE [None]
